FAERS Safety Report 8408986-5 (Version None)
Quarter: 2012Q2

REPORT INFORMATION
  Report Type: 
  Country: None (occurrence: None)
  Receive Date: 20120604
  Receipt Date: 20120323
  Transmission Date: 20120825
  Serious: No
  Sender: FDA-Public Use
  Company Number: US-NOVEN-12US004361

PATIENT
  Sex: Male
  Weight: 74.83 kg

DRUGS (2)
  1. DAYTRANA [Suspect]
     Indication: ATTENTION DEFICIT/HYPERACTIVITY DISORDER
     Dosage: 15 MG, UNK
     Route: 062
     Dates: start: 20120101
  2. LEXAPRO [Concomitant]
     Indication: MOOD SWINGS
     Dosage: 10 MG, UNK
     Route: 048

REACTIONS (1)
  - APPLICATION SITE URTICARIA [None]
